FAERS Safety Report 5914906-5 (Version None)
Quarter: 2008Q4

REPORT INFORMATION
  Report Type: 
  Country: None (occurrence: None)
  Receive Date: 20081010
  Receipt Date: 20081008
  Transmission Date: 20090506
  Serious: Yes (Death, Other)
  Sender: FDA-Public Use
  Company Number: PHEH2008US04527

PATIENT
  Sex: Female

DRUGS (11)
  1. ZOMETA [Suspect]
     Indication: BREAST CANCER METASTATIC
     Dosage: 4 MG IV EVERY 4 WEEKS
     Dates: end: 20070517
  2. DEXAMETHASONE [Concomitant]
     Dosage: VARIOUS DOSES
  3. GEMZAR [Concomitant]
     Dosage: 1000 MG Q 2 WEEKS
     Dates: start: 20041231, end: 20050518
  4. HERCEPTIN [Concomitant]
     Dosage: UNK
     Dates: start: 20050601, end: 20061122
  5. TAXOL [Concomitant]
     Dosage: 120 MG
     Dates: start: 20050713, end: 20050713
  6. ABRAXANE [Concomitant]
     Dosage: 425 MG Q 3 WEEKS
     Dates: start: 20050720, end: 20050831
  7. ABRAXANE [Concomitant]
     Dosage: 170 MG Q WEEK
     Dates: start: 20050922, end: 20051102
  8. CARBOPLATIN [Concomitant]
     Dosage: 150 MG Q WEEK
     Dates: start: 20051116, end: 20060505
  9. AVASTIN [Concomitant]
     Dosage: 630 MG Q 3 WEEKS
     Dates: start: 20060512, end: 20060607
  10. FLUOROURACIL [Concomitant]
     Dosage: 800 MG Q WEEK
     Dates: start: 20060510, end: 20060607
  11. DOXIL [Concomitant]
     Dosage: 50 MG Q 4 WEEKS
     Dates: start: 20061130, end: 20061228

REACTIONS (3)
  - BREAST CANCER [None]
  - OSTEONECROSIS [None]
  - PAIN IN JAW [None]
